FAERS Safety Report 4406718-9 (Version None)
Quarter: 2004Q3

REPORT INFORMATION
  Report Type: 
  Country: None (occurrence: None)
  Receive Date: 20040715
  Receipt Date: 20040630
  Transmission Date: 20050211
  Serious: Yes (Life-Threatening, Hospitalization)
  Sender: FDA-Public Use
  Company Number: 2004SE03690

PATIENT
  Age: 8 Year
  Sex: Female

DRUGS (1)
  1. SEROQUEL [Suspect]
     Dates: start: 20040617, end: 20040617

REACTIONS (3)
  - COMA [None]
  - MEDICATION ERROR [None]
  - OVERDOSE [None]
